APPROVED DRUG PRODUCT: TERBUTALINE SULFATE
Active Ingredient: TERBUTALINE SULFATE
Strength: 1MG/ML
Dosage Form/Route: INJECTABLE;INJECTION
Application: A200122 | Product #001 | TE Code: AP
Applicant: AREVA PHARMACEUTICALS INC
Approved: Nov 8, 2013 | RLD: No | RS: No | Type: RX